FAERS Safety Report 18586379 (Version 1)
Quarter: 2020Q4

REPORT INFORMATION
  Report Type: Spontaneous
  Country: US (occurrence: US)
  Receive Date: 20201207
  Receipt Date: 20201207
  Transmission Date: 20210114
  Serious: Yes (Hospitalization, Other)
  Sender: FDA-Public Use
  Company Number: US-PFIZER INC-2020479088

PATIENT
  Age: 48 Year
  Sex: Female
  Weight: 84.37 kg

DRUGS (4)
  1. EFFEXOR XR [Suspect]
     Active Substance: VENLAFAXINE HYDROCHLORIDE
     Indication: DEPRESSION
     Dosage: 300 MG
     Dates: start: 2006
  2. ATIVAN [Suspect]
     Active Substance: LORAZEPAM
     Indication: PANIC ATTACK
     Dosage: 0.5 MG, AS NEEDED (1 TAB 2X/DAY AS NEEDED, BUT ALWAYS TAKE 1 AT NIGHT BECAUSE HAS TROUBLE SLEEPING)
  3. EFFEXOR XR [Suspect]
     Active Substance: VENLAFAXINE HYDROCHLORIDE
     Indication: ATTENTION DEFICIT HYPERACTIVITY DISORDER
     Dosage: 150 MG, 1X/DAY (EACH MORNING)
     Route: 048
  4. ATIVAN [Suspect]
     Active Substance: LORAZEPAM
     Indication: ANXIETY
     Dosage: 1 MG
     Dates: start: 2006

REACTIONS (4)
  - Prescribed overdose [Unknown]
  - Disease progression [Recovered/Resolved with Sequelae]
  - Thymoma [Recovered/Resolved with Sequelae]
  - Dementia [Unknown]

NARRATIVE: CASE EVENT DATE: 2006
